FAERS Safety Report 8027987-2 (Version None)
Quarter: 2012Q1

REPORT INFORMATION
  Report Type: 
  Country: None (occurrence: None)
  Receive Date: 20120106
  Receipt Date: 20120103
  Transmission Date: 20120608
  Serious: Yes (Other)
  Sender: FDA-Public Use
  Company Number: GB-JNJFOC-20120100014

PATIENT
  Age: 20 Year
  Sex: Female
  Weight: 67 kg

DRUGS (4)
  1. NAPROXEN [Interacting]
     Indication: PAIN
     Route: 048
     Dates: start: 20111027, end: 20111205
  2. PREGABALIN [Interacting]
     Indication: PAIN
     Route: 048
     Dates: start: 20111025, end: 20111130
  3. NORGESTIMATE AND ETHINYL ESTRADIOL [Suspect]
     Indication: CONTRACEPTION
     Route: 065
  4. ACETAMINOPHEN AND CODEINE PHOSPHATE [Interacting]
     Indication: PAIN
     Route: 065

REACTIONS (3)
  - MATERNAL EXPOSURE DURING PREGNANCY [None]
  - PREGNANCY ON ORAL CONTRACEPTIVE [None]
  - DRUG INTERACTION [None]
